FAERS Safety Report 4940134-6 (Version None)
Quarter: 2006Q1

REPORT INFORMATION
  Report Type: 
  Country: None (occurrence: None)
  Receive Date: 20060307
  Receipt Date: 20060224
  Transmission Date: 20060701
  Serious: Yes (Hospitalization)
  Sender: FDA-Public Use
  Company Number: 144730USA

PATIENT
  Age: 19 Year
  Sex: Female

DRUGS (1)
  1. PURINETHOL [Suspect]
     Indication: COLITIS
     Dates: start: 20000101, end: 20060221

REACTIONS (5)
  - BACTERIAL INFECTION [None]
  - COLITIS [None]
  - OFF LABEL USE [None]
  - PAIN [None]
  - VOMITING [None]
